FAERS Safety Report 10026657 (Version 1)
Quarter: 2014Q1

REPORT INFORMATION
  Report Type: Spontaneous
  Country: US (occurrence: US)
  Receive Date: 20140321
  Receipt Date: 20140321
  Transmission Date: 20141002
  Serious: No
  Sender: FDA-Public Use
  Company Number: US-009507513-1403USA009945

PATIENT
  Sex: Male

DRUGS (3)
  1. VICTRELIS [Suspect]
     Route: 048
  2. RIBASPHERE [Suspect]
  3. PEGASYS [Suspect]

REACTIONS (5)
  - Hypertension [Unknown]
  - Heart rate increased [Unknown]
  - Insomnia [Unknown]
  - Alopecia [Unknown]
  - Fatigue [Unknown]
